FAERS Safety Report 5403694-7 (Version None)
Quarter: 2007Q3

REPORT INFORMATION
  Report Type: 
  Country: None (occurrence: None)
  Receive Date: 20070802
  Receipt Date: 20070724
  Transmission Date: 20080115
  Serious: Yes (Other)
  Sender: FDA-Public Use
  Company Number: US-JNJFOC-20070705554

PATIENT
  Sex: Female

DRUGS (6)
  1. REMICADE [Suspect]
     Route: 042
  2. REMICADE [Suspect]
     Indication: CROHN'S DISEASE
     Route: 042
  3. PRILOSEC [Concomitant]
  4. BEXTRA [Concomitant]
  5. CALCIUM CHLORIDE [Concomitant]
  6. ACTONEL [Concomitant]

REACTIONS (2)
  - COCCIDIOIDOMYCOSIS [None]
  - GASTROINTESTINAL DISORDER [None]
